FAERS Safety Report 8919287 (Version 1)
Quarter: 2012Q4

REPORT INFORMATION
  Report Type: 
  Country: US (occurrence: US)
  Receive Date: 20121121
  Receipt Date: 20121121
  Transmission Date: 20130627
  Serious: No
  Sender: FDA-Public Use
  Company Number: US-PFIZER INC-2012288391

PATIENT
  Sex: Female

DRUGS (1)
  1. NEURONTIN [Suspect]
     Dosage: 300 mg
     Dates: start: 20121115

REACTIONS (8)
  - Dysstasia [Unknown]
  - Dizziness [Unknown]
  - Dry throat [Unknown]
  - Dry mouth [Unknown]
  - Nasal dryness [Unknown]
  - Somnolence [Unknown]
  - Headache [Unknown]
  - Feeling abnormal [Unknown]
